FAERS Safety Report 10919128 (Version 2)
Quarter: 2015Q2

REPORT INFORMATION
  Report Type: Spontaneous
  Country: US (occurrence: US)
  Receive Date: 20150316
  Receipt Date: 20150624
  Transmission Date: 20150821
  Serious: No
  Sender: FDA-Public Use
  Company Number: US-ASTRAZENECA-2013SE35484

PATIENT
  Age: 712 Month
  Sex: Female
  Weight: 117.9 kg

DRUGS (6)
  1. GLYBURIDE. [Suspect]
     Active Substance: GLYBURIDE
     Indication: TYPE 2 DIABETES MELLITUS
     Dosage: TWO TIMES A DAY
     Route: 065
  2. FARXIGA [Suspect]
     Active Substance: DAPAGLIFLOZIN PROPANEDIOL
     Indication: TYPE 2 DIABETES MELLITUS
     Route: 048
     Dates: start: 20150506
  3. LOVAZA [Concomitant]
     Active Substance: OMEGA-3-ACID ETHYL ESTERS
     Indication: BLOOD TRIGLYCERIDES INCREASED
  4. BYDUREON [Suspect]
     Active Substance: EXENATIDE
     Indication: TYPE 2 DIABETES MELLITUS
     Route: 065
     Dates: start: 20130427, end: 201502
  5. UNKNOWN CHOLESTEROL MEDICATION [Concomitant]
     Active Substance: UNSPECIFIED INGREDIENT
     Indication: BLOOD CHOLESTEROL INCREASED
  6. METFORMIN HCL [Suspect]
     Active Substance: METFORMIN HYDROCHLORIDE
     Indication: TYPE 2 DIABETES MELLITUS
     Dosage: SHE USED TO TAKE 3 PILLS A DAY; 2 IN THE MORNING AND 1 AT NIGHT(NON AZ PRODUCT)
     Route: 065

REACTIONS (12)
  - Blood glucose increased [Unknown]
  - Weight increased [Unknown]
  - Injection site haemorrhage [Unknown]
  - Abdominal distension [Unknown]
  - Nausea [Unknown]
  - Diarrhoea [Unknown]
  - Glycosylated haemoglobin increased [Unknown]
  - Malaise [Recovered/Resolved]
  - Weight decreased [Unknown]
  - Injection site mass [Unknown]
  - Injection site nodule [Unknown]
  - Vomiting [Unknown]

NARRATIVE: CASE EVENT DATE: 201502
